FAERS Safety Report 5550625-5 (Version None)
Quarter: 2007Q4

REPORT INFORMATION
  Report Type: 
  Country: None (occurrence: None)
  Receive Date: 20071212
  Receipt Date: 20070507
  Transmission Date: 20080405
  Serious: No
  Sender: FDA-Public Use
  Company Number: US-AMGEN-KDL221772

PATIENT
  Sex: Male

DRUGS (7)
  1. ENBREL [Suspect]
     Indication: RHEUMATOID ARTHRITIS
     Route: 058
     Dates: start: 20060523
  2. PRILOSEC [Concomitant]
  3. ASPIRIN [Concomitant]
  4. CLONIDINE [Concomitant]
  5. VICODIN [Concomitant]
  6. METROGEL [Concomitant]
  7. IBUPROFEN [Concomitant]

REACTIONS (1)
  - TOOTH INFECTION [None]
